FAERS Safety Report 10681951 (Version 1)
Quarter: 2014Q4

REPORT INFORMATION
  Report Type: Spontaneous
  Country: US (occurrence: None)
  Receive Date: 20141229
  Receipt Date: 20141229
  Transmission Date: 20150529
  Serious: Yes (Life-Threatening, Hospitalization)
  Sender: FDA-Public Use
  Company Number: None

PATIENT
  Age: 56 Year
  Sex: Male
  Weight: 81.65 kg

DRUGS (1)
  1. XARELTO [Suspect]
     Active Substance: RIVAROXABAN
     Indication: ATRIAL FIBRILLATION
     Dosage: 1, ONCE DAILY
     Route: 048
     Dates: start: 20131114, end: 20141117

REACTIONS (3)
  - Hepatic failure [None]
  - Pericardial disease [None]
  - Acute kidney injury [None]

NARRATIVE: CASE EVENT DATE: 20131120
